FAERS Safety Report 5933602-1 (Version None)
Quarter: 2008Q4

REPORT INFORMATION
  Report Type: 
  Country: None (occurrence: None)
  Receive Date: 20081029
  Receipt Date: 20081017
  Transmission Date: 20090506
  Serious: Yes (Other)
  Sender: FDA-Public Use
  Company Number: DE-JNJFOC-20071002283

PATIENT
  Age: 62 Year
  Sex: Female

DRUGS (2)
  1. INVEGA [Suspect]
     Indication: DRUG USE FOR UNKNOWN INDICATION
     Route: 048
  2. ESCITALOPRAM [Concomitant]
     Indication: DRUG USE FOR UNKNOWN INDICATION

REACTIONS (5)
  - AGITATION [None]
  - CHOREOATHETOSIS [None]
  - EXTRAPYRAMIDAL DISORDER [None]
  - MASKED FACIES [None]
  - NERVOUSNESS [None]
